FAERS Safety Report 4938410-6 (Version None)
Quarter: 2006Q1

REPORT INFORMATION
  Report Type: 
  Country: None (occurrence: None)
  Receive Date: 20060308
  Receipt Date: 20060308
  Transmission Date: 20060701
  Serious: Yes (Disabling)
  Sender: FDA-Public Use
  Company Number: None

PATIENT

DRUGS (1)
  1. EXACTACAINE BENZO 14% TETRACAINE 2% BUTAMBEN2% HEALTHPOINT [Suspect]

REACTIONS (4)
  - DEVICE FAILURE [None]
  - DRUG ADMINISTRATION ERROR [None]
  - FOREIGN BODY TRAUMA [None]
  - MEDICAL DEVICE COMPLICATION [None]
